FAERS Safety Report 21312270 (Version 1)
Quarter: 2022Q3

REPORT INFORMATION
  Report Type: Spontaneous
  Country: US (occurrence: None)
  Receive Date: 20220909
  Receipt Date: 20220909
  Transmission Date: 20221026
  Serious: No
  Sender: FDA-Public Use
  Company Number: US-ARIS GLOBAL-202205-0896

PATIENT
  Age: 78 Year
  Sex: Male
  Weight: 83.082 kg

DRUGS (9)
  1. OXERVATE [Suspect]
     Active Substance: CENEGERMIN-BKBJ
     Indication: Neurotrophic keratopathy
     Route: 047
     Dates: start: 20220513
  2. OXERVATE [Suspect]
     Active Substance: CENEGERMIN-BKBJ
     Indication: Hypoaesthesia eye
  3. LEVOTHYROXINE SODIUM [Concomitant]
     Active Substance: LEVOTHYROXINE SODIUM
  4. ASPIRIN [Concomitant]
     Active Substance: ASPIRIN
  5. VITAMIN C [Concomitant]
     Active Substance: ASCORBIC ACID
  6. NESINA [Concomitant]
     Active Substance: ALOGLIPTIN BENZOATE
  7. TRADJENTA [Concomitant]
     Active Substance: LINAGLIPTIN
  8. CILOSTAZOL [Concomitant]
     Active Substance: CILOSTAZOL
  9. POLYVINYL ALCOHOL [Concomitant]
     Active Substance: POLYVINYL ALCOHOL

REACTIONS (1)
  - Wrong technique in product usage process [Unknown]

NARRATIVE: CASE EVENT DATE: 20220513
